FAERS Safety Report 24166571 (Version 1)
Quarter: 2024Q3

REPORT INFORMATION
  Report Type: Spontaneous
  Country: AR (occurrence: AR)
  Receive Date: 20240802
  Receipt Date: 20240802
  Transmission Date: 20241017
  Serious: Yes (Hospitalization, Other)
  Sender: RANBAXY
  Company Number: AR-SUN PHARMACEUTICAL INDUSTRIES LTD-2024R1-460258

PATIENT
  Age: 15 Year
  Sex: Male
  Weight: 49.4 kg

DRUGS (1)
  1. SULFAMETHOXAZOLE\TRIMETHOPRIM [Suspect]
     Active Substance: SULFAMETHOXAZOLE\TRIMETHOPRIM
     Indication: Urinary tract infection
     Dosage: UNK
     Route: 065

REACTIONS (6)
  - Tuberculosis gastrointestinal [Recovered/Resolved]
  - Conjunctival hyperaemia [Recovered/Resolved]
  - Rectal stenosis [Recovered/Resolved]
  - Pericardial effusion [Recovered/Resolved]
  - Oedema [Recovered/Resolved]
  - Pleural effusion [Recovered/Resolved]
